FAERS Safety Report 8812265 (Version 1)
Quarter: 2012Q4

REPORT INFORMATION
  Report Type: Spontaneous
  Country: GB (occurrence: None)
  Receive Date: 20120925
  Receipt Date: 20120925
  Transmission Date: 20130627
  Serious: Yes (Other)
  Sender: FDA-Public Use
  Company Number: GER/UKI/12/0025937

PATIENT
  Age: 20 Year
  Sex: Male
  Weight: 67 kg

DRUGS (5)
  1. CIPROFLOXACIN (CIPROFLOXACIN) [Suspect]
     Indication: SINUS INFECTION
     Dosage: 8 Total
     Route: 048
     Dates: start: 20120601, end: 20120606
  2. MAGNESIUM [Concomitant]
  3. COD LIVER OIL [Concomitant]
  4. IBUPROFEN [Concomitant]
  5. VITAMIN C (ASCORBIC ACID) [Concomitant]

REACTIONS (5)
  - Tendonitis [None]
  - Tinnitus [None]
  - Neuropathy peripheral [None]
  - Arthralgia [None]
  - Dry eye [None]
